FAERS Safety Report 8923215 (Version 1)
Quarter: 2012Q4

REPORT INFORMATION
  Report Type: 
  Country: CN (occurrence: CN)
  Receive Date: 20121124
  Receipt Date: 20121124
  Transmission Date: 20130627
  Serious: Yes (Other)
  Sender: FDA-Public Use
  Company Number: CN-BAYER-2012-122090

PATIENT
  Sex: Female

DRUGS (1)
  1. CLOTRIMAZOLE [Suspect]
     Dosage: 0.5 g, ONCE
     Route: 067
     Dates: start: 20121119, end: 20121119

REACTIONS (2)
  - Vaginal haemorrhage [None]
  - Abdominal pain [None]
